FAERS Safety Report 9702653 (Version 1)
Quarter: 2013Q4

REPORT INFORMATION
  Report Type: Report from Study
  Country: ES (occurrence: ES)
  Receive Date: 20131121
  Receipt Date: 20131121
  Transmission Date: 20140711
  Serious: Yes (Other)
  Sender: FDA-Public Use
  Company Number: ES-BAXTER-2013BAX045879

PATIENT
  Sex: 0

DRUGS (1)
  1. ADVATE 250 UI POLVO Y DISOLVENTE PARA SOLUCI?N INYECTABLE [Suspect]
     Indication: FACTOR VIII DEFICIENCY

REACTIONS (1)
  - Acute myocardial infarction [Unknown]
